FAERS Safety Report 5483536-4 (Version None)
Quarter: 2007Q4

REPORT INFORMATION
  Report Type: 
  Country: None (occurrence: None)
  Receive Date: 20071009
  Receipt Date: 20070927
  Transmission Date: 20080405
  Serious: Yes (Other)
  Sender: FDA-Public Use
  Company Number: 237604K07USA

PATIENT
  Age: 36 Year
  Sex: Female
  Weight: 63.5036 kg

DRUGS (4)
  1. REBIF [Suspect]
     Indication: RELAPSING-REMITTING MULTIPLE SCLEROSIS
     Dosage: 44 MCG, 3 IN 1 WEEKS, SUBCUTANEOUS
     Route: 058
     Dates: start: 20061002
  2. SINGULAIR [Concomitant]
  3. DESENSITIZATION SHOTS (ALL OTHER THERAPEUTIC PRODUCTS) [Concomitant]
  4. CYMBALTA [Concomitant]

REACTIONS (8)
  - CHOLELITHIASIS [None]
  - DUODENITIS [None]
  - FATIGUE [None]
  - HELICOBACTER INFECTION [None]
  - INJECTION SITE BRUISING [None]
  - INJECTION SITE ERYTHEMA [None]
  - PAIN [None]
  - PAIN IN EXTREMITY [None]
